FAERS Safety Report 17316096 (Version 1)
Quarter: 2020Q1

REPORT INFORMATION
  Report Type: Spontaneous
  Country: US (occurrence: US)
  Receive Date: 20200124
  Receipt Date: 20200124
  Transmission Date: 20200409
  Serious: Yes (Hospitalization, Other)
  Sender: FDA-Public Use
  Company Number: US-ALLERGAN-2002931US

PATIENT
  Sex: Female

DRUGS (8)
  1. BOTULINUM TOXIN TYPE A UNK [Suspect]
     Active Substance: BOTULINUM TOXIN TYPE A
     Dosage: 185 UNITS, SINGLE
     Route: 065
     Dates: start: 201712, end: 201712
  2. BOTULINUM TOXIN TYPE A UNK [Suspect]
     Active Substance: BOTULINUM TOXIN TYPE A
     Dosage: 140 UNITS, SINGLE
     Route: 065
     Dates: start: 201706, end: 201706
  3. BOTULINUM TOXIN TYPE A UNK [Suspect]
     Active Substance: BOTULINUM TOXIN TYPE A
     Dosage: 215 UNITS, SINGLE
     Route: 065
     Dates: start: 201808, end: 201808
  4. BOTULINUM TOXIN TYPE A UNK [Suspect]
     Active Substance: BOTULINUM TOXIN TYPE A
     Dosage: 205 UNITS, SINGLE
     Route: 065
     Dates: start: 201806, end: 201806
  5. BOTULINUM TOXIN TYPE A UNK [Suspect]
     Active Substance: BOTULINUM TOXIN TYPE A
     Indication: MIGRAINE
     Dosage: 235 UNITS, SINGLE
     Route: 065
     Dates: start: 2019, end: 2019
  6. BOTULINUM TOXIN TYPE A UNK [Suspect]
     Active Substance: BOTULINUM TOXIN TYPE A
     Dosage: 225 UNITS, SINGLE
     Route: 065
     Dates: start: 2019, end: 2019
  7. BOTULINUM TOXIN TYPE A UNK [Suspect]
     Active Substance: BOTULINUM TOXIN TYPE A
     Dosage: 175 UNITS, SINGLE
     Route: 065
     Dates: start: 201709, end: 201709
  8. BOTULINUM TOXIN TYPE A UNK [Suspect]
     Active Substance: BOTULINUM TOXIN TYPE A
     Dosage: 95 UNITS, SINGLE
     Route: 065
     Dates: start: 201703, end: 201703

REACTIONS (3)
  - Cerebral haemorrhage [Unknown]
  - Off label use [Unknown]
  - Injection site hypersensitivity [Recovered/Resolved]

NARRATIVE: CASE EVENT DATE: 201806
